FAERS Safety Report 9304838 (Version 1)
Quarter: 2013Q2

REPORT INFORMATION
  Report Type: Spontaneous
  Country: US (occurrence: None)
  Receive Date: 20130521
  Receipt Date: 20130521
  Transmission Date: 20140414
  Serious: No
  Sender: FDA-Public Use
  Company Number: None

PATIENT
  Age: 58 Year
  Sex: Female
  Weight: 87 kg

DRUGS (1)
  1. VANCOMYCIN [Suspect]
     Indication: OSTEOMYELITIS
     Route: 041
     Dates: start: 20130513, end: 20130514

REACTIONS (4)
  - Pruritus [None]
  - Dysphagia [None]
  - Burning sensation [None]
  - Throat tightness [None]
